FAERS Safety Report 8281978-5 (Version None)
Quarter: 2012Q2

REPORT INFORMATION
  Report Type: 
  Country: None (occurrence: None)
  Receive Date: 20120413
  Receipt Date: 20120405
  Transmission Date: 20120825
  Serious: Yes (Hospitalization, Other)
  Sender: FDA-Public Use
  Company Number: 2012SP001037

PATIENT
  Age: 70 Year
  Sex: Male
  Weight: 73 kg

DRUGS (1)
  1. LUNESTA [Suspect]
     Indication: INSOMNIA
     Route: 048
     Dates: start: 20060101

REACTIONS (4)
  - THROAT CANCER [None]
  - BACK PAIN [None]
  - ABDOMINAL DISCOMFORT [None]
  - LUNG NEOPLASM MALIGNANT [None]
